FAERS Safety Report 10181583 (Version 1)
Quarter: 2014Q2

REPORT INFORMATION
  Report Type: Spontaneous
  Country: JP (occurrence: JP)
  Receive Date: 20140519
  Receipt Date: 20140519
  Transmission Date: 20141212
  Serious: Yes (Other)
  Sender: FDA-Public Use
  Company Number: JP-GLAXOSMITHKLINE-B0994503A

PATIENT
  Age: 50 Year
  Sex: Female

DRUGS (3)
  1. RELENZA [Suspect]
     Indication: INFLUENZA
     Dosage: 10MG PER DAY
     Route: 055
     Dates: start: 20140407, end: 20140407
  2. CALONAL [Concomitant]
     Dosage: 400MG THREE TIMES PER DAY
     Route: 065
  3. MEDICON [Concomitant]
     Route: 048

REACTIONS (10)
  - Loss of consciousness [Recovered/Resolved]
  - Contusion [Unknown]
  - Epistaxis [Unknown]
  - Facial bones fracture [Unknown]
  - Dysgeusia [Unknown]
  - Parosmia [Unknown]
  - Tooth avulsion [Unknown]
  - Diarrhoea [Unknown]
  - Dehydration [Unknown]
  - Memory impairment [Unknown]
